FAERS Safety Report 15435786 (Version 1)
Quarter: 2018Q3

REPORT INFORMATION
  Report Type: Spontaneous
  Country: US (occurrence: US)
  Receive Date: 20180924
  Receipt Date: 20180924
  Transmission Date: 20181010
  Serious: Yes (Other)
  Sender: FDA-Public Use
  Company Number: None

PATIENT
  Age: 68 Year
  Sex: Male

DRUGS (2)
  1. ARMODAFINIL. [Suspect]
     Active Substance: ARMODAFINIL
     Indication: SLEEP APNOEA SYNDROME
     Dosage: ?          OTHER ROUTE:TABLET?
     Dates: start: 20180808, end: 20180809
  2. ARMODAFINIL. [Suspect]
     Active Substance: ARMODAFINIL
     Indication: HYPERSOMNIA

REACTIONS (3)
  - Drug intolerance [None]
  - Feeling jittery [None]
  - Product substitution issue [None]

NARRATIVE: CASE EVENT DATE: 20180808
